FAERS Safety Report 25808324 (Version 3)
Quarter: 2025Q4

REPORT INFORMATION
  Report Type: Report from Study
  Country: US (occurrence: US)
  Receive Date: 20250916
  Receipt Date: 20251006
  Transmission Date: 20260118
  Serious: Yes (Hospitalization)
  Sender: ABBVIE
  Company Number: US-ABBVIE-6460352

PATIENT
  Age: 74 Year
  Sex: Female
  Weight: 63.956 kg

DRUGS (36)
  1. CREON [Suspect]
     Active Substance: PANCRELIPASE AMYLASE\PANCRELIPASE LIPASE\PANCRELIPASE PROTEASE
     Indication: Flatulence
     Dosage: 36,000IU CAP 2 IN THE MORNING MEAL
     Route: 048
     Dates: start: 20250911
  2. CREON [Suspect]
     Active Substance: PANCRELIPASE AMYLASE\PANCRELIPASE LIPASE\PANCRELIPASE PROTEASE
     Indication: Flatulence
     Route: 048
     Dates: start: 2023, end: 20250807
  3. LEVOTHYROXINE [Concomitant]
     Active Substance: LEVOTHYROXINE
     Indication: Product used for unknown indication
     Dosage: 0.025 MG 925MCG) TAB 1 IN THE AM
  4. LEVOTHYROXINE [Concomitant]
     Active Substance: LEVOTHYROXINE
     Indication: Product used for unknown indication
     Dosage: 0.05 1 TAB A DAY
  5. Allergy eyes [Concomitant]
     Indication: Product used for unknown indication
     Dosage: DROPS 2 DROPS 2X A DAY
  6. OXYBUTYNIN [Concomitant]
     Active Substance: OXYBUTYNIN
     Indication: Product used for unknown indication
     Dosage: ER, TAKE ONE TABLET.
  7. CELECOXIB [Concomitant]
     Active Substance: CELECOXIB
     Indication: Product used for unknown indication
     Dosage: 20 CAPSULES 1 AT NIGHT 1 AM
  8. AMLODIPINE [Concomitant]
     Active Substance: AMLODIPINE BESYLATE
     Indication: Product used for unknown indication
     Dosage: TIME INTERVAL: AS NECESSARY
  9. Covid 19 Vaccine [Concomitant]
     Indication: Product used for unknown indication
  10. ZINC [Concomitant]
     Active Substance: ZINC
     Indication: Product used for unknown indication
  11. VITAMIN K [Concomitant]
     Active Substance: PHYTONADIONE
     Indication: Product used for unknown indication
     Dosage: (SUPER) K1 1500MG, K2 1100MG,
  12. ZYRTEC [Concomitant]
     Active Substance: CETIRIZINE HYDROCHLORIDE
     Indication: Product used for unknown indication
     Dosage: 10 MG 1 NIGHT
  13. Gentle Iron [Concomitant]
     Indication: Product used for unknown indication
     Dosage: 1 FOR 3DAYS 2 ON THE 4TH DAY
  14. HYDROXYZINE [Concomitant]
     Active Substance: HYDROXYZINE HYDROCHLORIDE
     Indication: Product used for unknown indication
     Dosage: 1 AM 1 PM
  15. MELOXICAM [Concomitant]
     Active Substance: MELOXICAM
     Indication: Product used for unknown indication
     Dosage: 1 DAY
  16. VITAMIN C [Concomitant]
     Active Substance: ASCORBIC ACID
     Indication: Product used for unknown indication
  17. FISH OIL\OMEGA-3 FATTY ACIDS [Concomitant]
     Active Substance: FISH OIL\OMEGA-3 FATTY ACIDS
     Indication: Product used for unknown indication
     Dosage: CONCENTRATE 1 DAY
  18. ZOLEDRONIC ACID [Concomitant]
     Active Substance: ZOLEDRONIC ACID
     Indication: Product used for unknown indication
     Dosage: INJECTION 5MG/100ML (RECLAST INFUSION) 1 TIME A YEAR. ACUTE OSTEOPENIA
  19. VITAMIN D3 [Concomitant]
     Active Substance: CHOLECALCIFEROL
     Indication: Product used for unknown indication
     Dosage: (5000IU)
  20. NURTEC ODT [Concomitant]
     Active Substance: RIMEGEPANT SULFATE
     Indication: Product used for unknown indication
     Dosage: TABLET DISSOLVE 1 TABLET ON TOUNUE AT ONSET OF MIGRAINE
  21. VITAMIN A [Concomitant]
     Active Substance: VITAMIN A
     Indication: Product used for unknown indication
     Dosage: 10,000 IU
  22. XALATAN [Concomitant]
     Active Substance: LATANOPROST
     Indication: Glaucoma
     Dosage: SOL. 2.5ML 0.005PC-/ 1DROP EACH EYE NIGHT
  23. TIZANIDINE [Concomitant]
     Active Substance: TIZANIDINE
     Indication: Product used for unknown indication
     Dosage: HCL 4MG 2TABS (1-12HRS MUSCLE SPASM) ONLY WHEN NEEDED FOR NECK)
  24. B12 [Concomitant]
     Indication: Product used for unknown indication
  25. PYRIDOXINE HYDROCHLORIDE [Concomitant]
     Active Substance: PYRIDOXINE HYDROCHLORIDE
     Indication: Product used for unknown indication
  26. TOPIRAMATE [Concomitant]
     Active Substance: TOPIRAMATE
     Indication: Product used for unknown indication
     Dosage: 200/1TAB AM SRINKLE CAPS (FOR PETITE GRAND MALL SEIZURE
  27. PANTOPRAZOLE [Concomitant]
     Active Substance: PANTOPRAZOLE
     Indication: Product used for unknown indication
     Dosage: TB 40MG /1TAB IN MORNING (ACIPHEX) FOR BARRETT^S ESOPHAGUS
  28. MAGNESIUM [Concomitant]
     Active Substance: MAGNESIUM
     Indication: Product used for unknown indication
     Dosage: 350
  29. CALCIUM [Concomitant]
     Active Substance: CALCIUM
     Indication: Product used for unknown indication
     Dosage: +( D325MG)1630 MG
  30. BOTOX [Concomitant]
     Active Substance: ONABOTULINUMTOXINA
     Indication: Migraine
     Dosage: TEMPOROMANDIBULAR JOINT
  31. Liothyonine [Concomitant]
     Indication: Product used for unknown indication
     Dosage: 1 AT NIGHT
  32. DICLOFENAC [Concomitant]
     Active Substance: DICLOFENAC
     Indication: Product used for unknown indication
     Dosage: TOPICAL GEL 1% 4X DAY
  33. DIAZEPAM [Concomitant]
     Active Substance: DIAZEPAM
     Indication: Product used for unknown indication
     Dosage: ADMINISTER 1 TABLET TWICE A DAY AS NECESSARY FOR ANXIETY
  34. MINERALS\VITAMINS [Concomitant]
     Active Substance: MINERALS\VITAMINS
     Indication: Product used for unknown indication
     Dosage: 1-DAY
  35. IBUPROFEN [Concomitant]
     Active Substance: IBUPROFEN
     Indication: Product used for unknown indication
     Dosage: LOW AMOUNT
  36. AZELASTINE [Concomitant]
     Active Substance: AZELASTINE
     Indication: Product used for unknown indication
     Dosage: HCI NASAL SOULTION 0.1%

REACTIONS (4)
  - Road traffic accident [Recovered/Resolved]
  - Skin laceration [Recovered/Resolved]
  - Haematoma [Recovered/Resolved]
  - Calcinosis [Not Recovered/Not Resolved]

NARRATIVE: CASE EVENT DATE: 20250807
